APPROVED DRUG PRODUCT: PEPCID
Active Ingredient: FAMOTIDINE
Strength: 40MG/5ML **Federal Register determination that product was not discontinued or withdrawn for safety or effectiveness reasons**
Dosage Form/Route: FOR SUSPENSION;ORAL
Application: N019527 | Product #001
Applicant: SALIX PHARMACEUTICALS INC
Approved: Feb 2, 1987 | RLD: Yes | RS: No | Type: DISCN